FAERS Safety Report 8947033 (Version 2)
Quarter: 2012Q4

REPORT INFORMATION
  Report Type: 
  Country: JP (occurrence: JP)
  Receive Date: 20121205
  Receipt Date: 20121217
  Transmission Date: 20130627
  Serious: Yes (Other)
  Sender: FDA-Public Use
  Company Number: JP-009507513-1212JPN000294

PATIENT
  Age: 43 Year
  Sex: Female

DRUGS (8)
  1. UNSPECIFIED INGREDIENT [Suspect]
     Indication: ABDOMINAL PAIN UPPER
     Route: 048
  2. UNSPECIFIED [Suspect]
     Indication: DIARRHOEA
  3. CALCIUM POLYCARBOPHIL [Suspect]
     Indication: ABDOMINAL PAIN UPPER
     Route: 048
  4. CALCIUM POLYCARBOPHIL [Suspect]
     Indication: DIARRHOEA
  5. HANGE-KOBOKU-TO [Concomitant]
     Indication: ABDOMINAL PAIN UPPER
     Route: 048
  6. HANGE-KOBOKU-TO [Concomitant]
     Indication: DIARRHOEA
  7. HANGE-SHASHIN-TO [Concomitant]
     Indication: ABDOMINAL PAIN UPPER
     Route: 048
  8. HANGE-SHASHIN-TO [Concomitant]
     Indication: DIARRHOEA

REACTIONS (6)
  - Drug-induced liver injury [Recovering/Resolving]
  - Aspartate aminotransferase increased [None]
  - Alanine aminotransferase increased [None]
  - Gallbladder oedema [None]
  - Ascites [None]
  - Gastroenteritis eosinophilic [None]
